FAERS Safety Report 19989241 (Version 1)
Quarter: 2021Q4

REPORT INFORMATION
  Report Type: Other
  Country: CN (occurrence: CN)
  Receive Date: 20211025
  Receipt Date: 20211025
  Transmission Date: 20220303
  Serious: Yes (Death, Hospitalization)
  Sender: FDA-Public Use
  Company Number: CN-NATCO PHARMA LIMITED-2120935

PATIENT
  Age: 34 Year
  Sex: Female

DRUGS (8)
  1. AZACITIDINE [Suspect]
     Active Substance: AZACITIDINE
     Indication: Acute myeloid leukaemia recurrent
  2. METHOTREXATE [Suspect]
     Active Substance: METHOTREXATE
  3. CYTARABINE [Suspect]
     Active Substance: CYTARABINE
  4. DEXAMETHASONE [Concomitant]
     Active Substance: DEXAMETHASONE
  5. VENCLEXTA [Suspect]
     Active Substance: VENETOCLAX
  6. DECITABINE [Suspect]
     Active Substance: DECITABINE
  7. ALDESLEUKIN [Suspect]
     Active Substance: ALDESLEUKIN
  8. THALOMID [Suspect]
     Active Substance: THALIDOMIDE

REACTIONS (1)
  - Drug ineffective [None]
